FAERS Safety Report 16465442 (Version 1)
Quarter: 2019Q2

REPORT INFORMATION
  Report Type: Spontaneous
  Country: GB (occurrence: GB)
  Receive Date: 20190621
  Receipt Date: 20190621
  Transmission Date: 20190711
  Serious: Yes (Disabling, Other)
  Sender: FDA-Public Use
  Company Number: GB-MYLANLABS-2019M1057851

PATIENT
  Age: 37 Year
  Sex: Female
  Weight: 57.15 kg

DRUGS (2)
  1. PARACETAMOL [Concomitant]
     Active Substance: ACETAMINOPHEN
     Dosage: UNK
  2. DOXYCYCLINE. [Suspect]
     Active Substance: DOXYCYCLINE
     Indication: SINUSITIS
     Dosage: 50 MILLIGRAM
     Route: 048
     Dates: start: 20190102, end: 20190103

REACTIONS (5)
  - Nausea [Unknown]
  - Dizziness [Unknown]
  - Malaise [Recovered/Resolved]
  - Visual impairment [Recovered/Resolved]
  - Vision blurred [Unknown]

NARRATIVE: CASE EVENT DATE: 20190102
